FAERS Safety Report 9728313 (Version 4)
Quarter: 2014Q2

REPORT INFORMATION
  Report Type: Spontaneous
  Country: US (occurrence: US)
  Receive Date: 20131204
  Receipt Date: 20140530
  Transmission Date: 20141212
  Serious: Yes (Hospitalization)
  Sender: FDA-Public Use
  Company Number: US-BAYER-2013-145668

PATIENT
  Age: 38 Year
  Sex: Female
  Weight: 170.98 kg

DRUGS (8)
  1. MIRENA [Suspect]
     Indication: CONTRACEPTION
     Dosage: 20 MCG/24HR, CONT
     Route: 015
     Dates: start: 20101201, end: 20110218
  2. B12 [Concomitant]
     Route: 048
  3. FOLIC ACID [Concomitant]
     Route: 048
  4. VITAMIN B6 [Concomitant]
     Route: 048
  5. BABY ASPIRIN [Concomitant]
     Route: 048
  6. VITAMIN D3 [Concomitant]
     Route: 048
  7. VITAMIN E [Concomitant]
  8. ZANTAC [Concomitant]

REACTIONS (9)
  - Uterine perforation [None]
  - Injury [None]
  - Medical device discomfort [None]
  - Pain [None]
  - Procedural pain [None]
  - Scar [None]
  - Emotional distress [None]
  - Colon injury [None]
  - Device issue [None]
